FAERS Safety Report 24614602 (Version 1)
Quarter: 2024Q4

REPORT INFORMATION
  Report Type: Spontaneous
  Country: CN (occurrence: CN)
  Receive Date: 20241113
  Receipt Date: 20241113
  Transmission Date: 20250115
  Serious: Yes (Other)
  Sender: BEIGENE
  Company Number: CN-BEIGENE-BGN-2024-017785

PATIENT

DRUGS (3)
  1. TISLELIZUMAB [Suspect]
     Active Substance: TISLELIZUMAB
     Indication: Cholangiocarcinoma
     Dosage: 200 MILLIGRAM, Q3WK
     Dates: start: 20240621, end: 20240913
  2. GIMERACIL\OTERACIL\TEGAFUR [Suspect]
     Active Substance: GIMERACIL\OTERACIL POTASSIUM\TEGAFUR
     Indication: Cholangiocarcinoma
     Dosage: 6 MILLIGRAM, BID
     Dates: start: 20240621, end: 20240913
  3. GEMCITABINE HYDROCHLORIDE [Suspect]
     Active Substance: GEMCITABINE HYDROCHLORIDE
     Indication: Cholangiocarcinoma
     Dosage: 1.4 GRAM, 2 TIMES PER 21 DAYS
     Dates: start: 20240621, end: 20240913

REACTIONS (3)
  - Myelosuppression [Unknown]
  - Blood sodium decreased [Recovering/Resolving]
  - Hypoproteinaemia [Recovering/Resolving]

NARRATIVE: CASE EVENT DATE: 20240828
